FAERS Safety Report 9444036 (Version 1)
Quarter: 2013Q3

REPORT INFORMATION
  Report Type: Spontaneous
  Country: US (occurrence: None)
  Receive Date: 20130806
  Receipt Date: 20130806
  Transmission Date: 20140515
  Serious: Yes (Death)
  Sender: FDA-Public Use
  Company Number: None

PATIENT
  Sex: Female

DRUGS (1)
  1. KETOROLAC [Suspect]
     Indication: MYALGIA
     Dosage: 60MG  TIW  I.M.?~ 9 MONTHS
     Route: 030

REACTIONS (1)
  - Pneumonia [None]
